FAERS Safety Report 15945435 (Version 2)
Quarter: 2019Q2

REPORT INFORMATION
  Report Type: Spontaneous
  Country: US (occurrence: US)
  Receive Date: 20190211
  Receipt Date: 20190402
  Transmission Date: 20190711
  Serious: No
  Sender: FDA-Public Use
  Company Number: US-SA-2019SA036931

PATIENT
  Sex: Male

DRUGS (9)
  1. ASPIRIN [ACETYLSALICYLIC ACID] [Concomitant]
     Active Substance: ASPIRIN
     Dosage: 325 MG
  2. PRALUENT [Suspect]
     Active Substance: ALIROCUMAB
     Indication: HYPERLIPIDAEMIA
     Dosage: 1 DF, QOW
     Route: 058
  3. BUDESONIDE. [Concomitant]
     Active Substance: BUDESONIDE
  4. RANITIDINE HCL [Concomitant]
     Active Substance: RANITIDINE HYDROCHLORIDE
     Dosage: 150 MG
  5. PROAIR HFA [Concomitant]
     Active Substance: ALBUTEROL SULFATE
     Dosage: 90 UG
  6. LORATA-DINE D [LORATADINE;PSEUDOEPHEDRINE SULFATE] [Concomitant]
     Dosage: UNK UNK, QD
  7. VITAMIN D3 [Concomitant]
     Active Substance: CHOLECALCIFEROL
  8. BREO ELLIPTA [Concomitant]
     Active Substance: FLUTICASONE FUROATE\VILANTEROL TRIFENATATE
  9. HYDROCHLOROTHIAZIDE;METOPROLOL [Concomitant]

REACTIONS (2)
  - Pain [Unknown]
  - Myalgia [Unknown]
